FAERS Safety Report 9457221 (Version 1)
Quarter: 2013Q3

REPORT INFORMATION
  Report Type: Spontaneous
  Country: US (occurrence: US)
  Receive Date: 20130814
  Receipt Date: 20130814
  Transmission Date: 20140515
  Serious: No
  Sender: FDA-Public Use
  Company Number: US-009507513-1308USA001519

PATIENT
  Sex: Female

DRUGS (1)
  1. ZETIA [Suspect]
     Route: 048

REACTIONS (2)
  - Chest discomfort [Unknown]
  - Blood pressure decreased [Unknown]
